FAERS Safety Report 7512636-X (Version None)
Quarter: 2011Q2

REPORT INFORMATION
  Report Type: 
  Country: None (occurrence: None)
  Receive Date: 20110531
  Receipt Date: 20110527
  Transmission Date: 20111010
  Serious: Yes (Other)
  Sender: FDA-Public Use
  Company Number: RU-ROCHE-779733

PATIENT
  Age: 32 Year
  Sex: Female
  Weight: 58 kg

DRUGS (3)
  1. REBETOL [Suspect]
     Route: 048
     Dates: start: 20110216, end: 20110506
  2. PEGASYS [Suspect]
     Route: 058
     Dates: start: 20110216, end: 20110506
  3. NEUPOGEN [Concomitant]
     Indication: LEUKOPENIA
     Route: 058
     Dates: start: 20110302, end: 20110509

REACTIONS (6)
  - NEUTROPENIA [None]
  - LYMPHADENOPATHY [None]
  - SARCOIDOSIS [None]
  - PYREXIA [None]
  - SINUS TACHYCARDIA [None]
  - LEUKOPENIA [None]
